FAERS Safety Report 13666604 (Version 1)
Quarter: 2017Q2

REPORT INFORMATION
  Report Type: Spontaneous
  Country: US (occurrence: US)
  Receive Date: 20170619
  Receipt Date: 20170619
  Transmission Date: 20170830
  Serious: No
  Sender: FDA-Public Use
  Company Number: US-ROCHE-750704

PATIENT
  Sex: Female

DRUGS (1)
  1. XELODA [Suspect]
     Active Substance: CAPECITABINE
     Indication: GASTRIC CANCER
     Route: 065

REACTIONS (4)
  - Accidental exposure to product [Unknown]
  - Eye swelling [Unknown]
  - Wrong technique in product usage process [Unknown]
  - Rash [Unknown]
